FAERS Safety Report 5072948-9 (Version None)
Quarter: 2006Q3

REPORT INFORMATION
  Report Type: 
  Country: None (occurrence: None)
  Receive Date: 20060802
  Receipt Date: 20060717
  Transmission Date: 20061208
  Serious: Yes (Other)
  Sender: FDA-Public Use
  Company Number: 228040

PATIENT
  Age: 75 Year
  Sex: Female

DRUGS (2)
  1. AVASTIN [Suspect]
     Indication: COLON CANCER
     Dates: start: 20060620
  2. ELOXATIN [Suspect]
     Indication: COLON CANCER
     Dates: start: 20060620

REACTIONS (6)
  - ANAPHYLACTIC REACTION [None]
  - CHILLS [None]
  - HYPERTHERMIA [None]
  - INFUSION RELATED REACTION [None]
  - SHOCK [None]
  - TREMOR [None]
